FAERS Safety Report 9664946 (Version 1)
Quarter: 2013Q4

REPORT INFORMATION
  Report Type: Spontaneous
  Country: SE (occurrence: SE)
  Receive Date: 20131101
  Receipt Date: 20131101
  Transmission Date: 20140711
  Serious: Yes (Other)
  Sender: FDA-Public Use
  Company Number: SE-009507513-1311SWE000176

PATIENT
  Age: 80 Year
  Sex: Female

DRUGS (8)
  1. FOSAMAX [Suspect]
     Route: 048
  2. ACETYLCYSTEIN ALTERNOVA [Concomitant]
  3. METOPROLOL [Concomitant]
  4. KALCIPOS D [Concomitant]
  5. LOSARTAN POTASSIUM [Concomitant]
  6. OVESTERIN [Concomitant]
  7. ESIDREX [Concomitant]
  8. BEHEPAN [Concomitant]

REACTIONS (1)
  - Osteonecrosis [Not Recovered/Not Resolved]
